FAERS Safety Report 11270797 (Version 1)
Quarter: 2015Q3

REPORT INFORMATION
  Report Type: Spontaneous
  Country: US (occurrence: US)
  Receive Date: 20150714
  Receipt Date: 20150714
  Transmission Date: 20151125
  Serious: Yes (Disabling)
  Sender: FDA-Public Use
  Company Number: US-PFIZER INC-2015229857

PATIENT
  Sex: Female

DRUGS (1)
  1. LYRICA [Suspect]
     Active Substance: PREGABALIN
     Dosage: UNK

REACTIONS (6)
  - Pain [Unknown]
  - Thinking abnormal [Unknown]
  - VIIth nerve paralysis [Unknown]
  - Neuralgia [Unknown]
  - Depressed mood [Unknown]
  - Drug withdrawal syndrome [Unknown]
